FAERS Safety Report 12528412 (Version 1)
Quarter: 2016Q3

REPORT INFORMATION
  Report Type: Report from Study
  Country: IN (occurrence: IN)
  Receive Date: 20160705
  Receipt Date: 20160705
  Transmission Date: 20161109
  Serious: Yes (Death, Other)
  Sender: FDA-Public Use
  Company Number: IN-009507513-1607IND001290

PATIENT
  Sex: Male
  Weight: 58 kg

DRUGS (1)
  1. SITAGLIPTIN PHOSPHATE (+) METFORMIN HYDROCHLORIDE [Suspect]
     Active Substance: METFORMIN HYDROCHLORIDE\SITAGLIPTIN PHOSPHATE
     Indication: DIABETES MELLITUS
     Dosage: 2 TABLETS PER DAY; STRENGTH: 50/500 MG/DL
     Route: 048

REACTIONS (3)
  - Atrioventricular block [Fatal]
  - Blood potassium decreased [Fatal]
  - Myocardial infarction [Fatal]
